FAERS Safety Report 8195344-4 (Version None)
Quarter: 2012Q1

REPORT INFORMATION
  Report Type: 
  Country: None (occurrence: None)
  Receive Date: 20120308
  Receipt Date: 20110624
  Transmission Date: 20120608
  Serious: Yes (Hospitalization)
  Sender: FDA-Public Use
  Company Number: US-GLAXOSMITHKLINE-A0935937A

PATIENT
  Age: 48 Year
  Sex: Female

DRUGS (1)
  1. AVANDIA [Suspect]
     Indication: DIABETES MELLITUS
     Dosage: 8MG PER DAY
     Route: 048
     Dates: start: 20040101, end: 20090101

REACTIONS (5)
  - BALANCE DISORDER [None]
  - MUSCLE SPASMS [None]
  - ANKLE FRACTURE [None]
  - CORONARY ARTERIAL STENT INSERTION [None]
  - LOWER LIMB FRACTURE [None]
